FAERS Safety Report 9683858 (Version 1)
Quarter: 2013Q4

REPORT INFORMATION
  Report Type: Spontaneous
  Country: US (occurrence: US)
  Receive Date: 20131112
  Receipt Date: 20131112
  Transmission Date: 20140711
  Serious: Yes (Hospitalization)
  Sender: FDA-Public Use
  Company Number: US-BAXTER-2013BAX043932

PATIENT
  Sex: Female

DRUGS (3)
  1. DIANEAL PD2 [Suspect]
     Indication: RENAL FAILURE CHRONIC
     Route: 033
  2. DIANEAL PD2 (ULTRABAG) [Suspect]
     Indication: RENAL FAILURE CHRONIC
     Route: 033
  3. PERCOCET [Suspect]
     Indication: PAIN
     Dosage: 2 PILLS

REACTIONS (9)
  - Drug hypersensitivity [Recovering/Resolving]
  - Aphasia [Recovering/Resolving]
  - Abasia [Recovering/Resolving]
  - Depressed level of consciousness [Recovering/Resolving]
  - Haemorrhage [Recovering/Resolving]
  - Constipation [Recovering/Resolving]
  - Hypotension [Recovering/Resolving]
  - Pain [Recovering/Resolving]
  - Dehydration [Recovering/Resolving]
